FAERS Safety Report 20178719 (Version 7)
Quarter: 2022Q2

REPORT INFORMATION
  Report Type: Report from Study
  Country: CA (occurrence: CA)
  Receive Date: 20211214
  Receipt Date: 20220620
  Transmission Date: 20220721
  Serious: Yes (Hospitalization, Other)
  Sender: FDA-Public Use
  Company Number: CA-BRISTOL-MYERS SQUIBB COMPANY-BMS-2021-132907

PATIENT
  Age: 87 Year
  Sex: Female
  Weight: 88 kg

DRUGS (25)
  1. ABATACEPT [Suspect]
     Active Substance: ABATACEPT
     Indication: Rheumatoid arthritis
     Dosage: 750 MILLIGRAM, Q4WK
     Route: 042
     Dates: start: 20160412
  2. ABATACEPT [Suspect]
     Active Substance: ABATACEPT
     Route: 042
  3. ARAVA [Concomitant]
     Active Substance: LEFLUNOMIDE
     Indication: Product used for unknown indication
     Route: 065
     Dates: start: 20150701
  4. ASPIRIN [Concomitant]
     Active Substance: ASPIRIN
     Indication: Pain
     Dosage: DELAYED RELEASE TABLET
     Route: 048
     Dates: start: 20211206
  5. CALCIUM CARBONATE [Concomitant]
     Active Substance: CALCIUM CARBONATE
     Indication: Product used for unknown indication
     Route: 048
  6. FOLIC ACID [Concomitant]
     Active Substance: FOLIC ACID
     Indication: Product used for unknown indication
     Route: 048
  7. LACTULOSE [Concomitant]
     Active Substance: LACTULOSE
     Indication: Constipation
     Dosage: 10G/15ML
     Route: 048
  8. METHOTREXATE [Concomitant]
     Active Substance: METHOTREXATE
     Indication: Product used for unknown indication
     Route: 065
     Dates: start: 20050101
  9. METHOTREXATE [Concomitant]
     Active Substance: METHOTREXATE
     Dosage: 6 TABS WEEKLY ON FRIDAYS
     Route: 048
  10. NIZATIDINE [Concomitant]
     Active Substance: NIZATIDINE
     Indication: Product used for unknown indication
     Route: 048
  11. RISEDRONATE SODIUM [Concomitant]
     Active Substance: RISEDRONATE SODIUM
     Indication: Product used for unknown indication
     Dosage: DEALYED RELEASE TABLET. 1 TAB WEEKLY ON SATURDAYS.
     Route: 048
  12. SPIRONOLACTONE [Concomitant]
     Active Substance: SPIRONOLACTONE
     Indication: Product used for unknown indication
     Route: 048
  13. FUROSEMIDE [Concomitant]
     Active Substance: FUROSEMIDE
     Indication: Product used for unknown indication
     Route: 048
  14. TELMISARTAN [Concomitant]
     Active Substance: TELMISARTAN
     Indication: Product used for unknown indication
     Route: 048
  15. PANCRELIPASE [Concomitant]
     Active Substance: PANCRELIPASE
     Indication: Product used for unknown indication
  16. TEARS NATURAL II [Concomitant]
     Indication: Dry eye
     Dosage: OCULAR LUBRICANT, OPHTHALAMIC SOLUTION, 2 DROP BOTH EYES AT BED TIME.
     Route: 065
  17. NITROGLYCERIN [Concomitant]
     Active Substance: NITROGLYCERIN
     Indication: Chest pain
     Dosage: 1ST SPRAY, Q5MIN, PRN
     Route: 060
     Dates: start: 20211205
  18. VITAMIN D3 [Concomitant]
     Active Substance: CHOLECALCIFEROL
     Indication: Product used for unknown indication
     Route: 048
  19. ASPIRIN [Concomitant]
     Active Substance: ASPIRIN
     Indication: Product used for unknown indication
     Route: 048
  20. SARS-CoV-2(COVID-19) VACCINE [Concomitant]
     Indication: COVID-19 immunisation
     Dates: start: 20210602
  21. SARS-CoV-2(COVID-19) VACCINE [Concomitant]
     Dates: start: 20210319
  22. TYLENOL [Concomitant]
     Active Substance: ACETAMINOPHEN
     Indication: Pain
     Dosage: 2 TAB, Q4H
     Route: 048
     Dates: start: 20211205
  23. ACETAMINOPHEN [Concomitant]
     Active Substance: ACETAMINOPHEN
     Indication: Pain
     Route: 048
  24. CAFFEINE [Concomitant]
     Active Substance: CAFFEINE
     Indication: Pain
     Route: 048
  25. CODEINE [Concomitant]
     Active Substance: CODEINE
     Indication: Pain
     Route: 048

REACTIONS (12)
  - Fall [Recovering/Resolving]
  - Rib fracture [Recovered/Resolved]
  - Acute myocardial infarction [Recovered/Resolved]
  - Hypotension [Recovered/Resolved]
  - Oedema peripheral [Unknown]
  - Arthropathy [Unknown]
  - Pain in extremity [Recovering/Resolving]
  - Peripheral swelling [Recovering/Resolving]
  - Arthralgia [Recovering/Resolving]
  - Localised infection [Recovering/Resolving]
  - Osteoarthritis [Unknown]
  - Vascular calcification [Unknown]

NARRATIVE: CASE EVENT DATE: 20211204
